FAERS Safety Report 21592264 (Version 1)
Quarter: 2022Q4

REPORT INFORMATION
  Report Type: Spontaneous
  Country: CA (occurrence: CA)
  Receive Date: 20221114
  Receipt Date: 20221114
  Transmission Date: 20230112
  Serious: Yes (Disabling)
  Sender: FDA-Public Use
  Company Number: CA-MYLANLABS-2022M1123963

PATIENT
  Age: 52 Year
  Sex: Female
  Weight: 108 kg

DRUGS (6)
  1. LUVOX [Suspect]
     Active Substance: FLUVOXAMINE MALEATE
     Indication: COVID-19
     Dosage: 100 MILLIGRAM, QD
     Route: 065
  2. LUVOX [Suspect]
     Active Substance: FLUVOXAMINE MALEATE
     Dosage: 100 MILLIGRAM, QD
     Route: 065
  3. LUVOX [Suspect]
     Active Substance: FLUVOXAMINE MALEATE
     Dosage: 100 MILLIGRAM, BID
     Route: 065
  4. LUVOX [Suspect]
     Active Substance: FLUVOXAMINE MALEATE
     Dosage: 50 MILLIGRAM, QD
     Route: 065
  5. ESTROGEL [Concomitant]
     Active Substance: ESTRADIOL
     Dosage: UNK
     Route: 065
  6. PULMICORT TURBUHALER [Concomitant]
     Active Substance: BUDESONIDE
     Dosage: UNK
     Route: 065

REACTIONS (11)
  - COVID-19 [Not Recovered/Not Resolved]
  - Chorea [Not Recovered/Not Resolved]
  - Dysarthria [Not Recovered/Not Resolved]
  - Extrapyramidal disorder [Not Recovered/Not Resolved]
  - Hepatic enzyme increased [Not Recovered/Not Resolved]
  - Myoclonus [Not Recovered/Not Resolved]
  - Restlessness [Not Recovered/Not Resolved]
  - Speech disorder [Not Recovered/Not Resolved]
  - Tardive dyskinesia [Not Recovered/Not Resolved]
  - Tremor [Not Recovered/Not Resolved]
  - Off label use [Not Recovered/Not Resolved]
